FAERS Safety Report 23623658 (Version 1)
Quarter: 2024Q1

REPORT INFORMATION
  Report Type: Report from Study
  Country: CO (occurrence: CO)
  Receive Date: 20240312
  Receipt Date: 20240312
  Transmission Date: 20240409
  Serious: Yes (Other)
  Sender: FDA-Public Use
  Company Number: CO-JNJFOC-20230828181

PATIENT
  Age: 77 Year
  Sex: Female
  Weight: 66 kg

DRUGS (1)
  1. IMBRUVICA [Suspect]
     Active Substance: IBRUTINIB
     Indication: Chronic lymphocytic leukaemia
     Route: 048
     Dates: start: 20161101

REACTIONS (1)
  - Vascular rupture [Unknown]

NARRATIVE: CASE EVENT DATE: 20230701
